FAERS Safety Report 5163463-2 (Version None)
Quarter: 2006Q4

REPORT INFORMATION
  Report Type: 
  Country: None (occurrence: None)
  Receive Date: 20061128
  Receipt Date: 20061128
  Transmission Date: 20070319
  Serious: Yes (Life-Threatening)
  Sender: FDA-Public Use
  Company Number: None

PATIENT
  Sex: Female
  Weight: 49.4421 kg

DRUGS (1)
  1. SORBITOL SOLUTION USP - 70%  W/W [Suspect]
     Indication: CONSTIPATION
     Dosage: 1 TABLESPOON    1X ONLY    MOUTH
     Route: 048
     Dates: start: 20060306

REACTIONS (1)
  - CHEST PAIN [None]
